FAERS Safety Report 10214162 (Version 2)
Quarter: 2014Q2

REPORT INFORMATION
  Report Type: Report from Study
  Country: GB (occurrence: None)
  Receive Date: 20140530
  Receipt Date: 20140611
  Transmission Date: 20141212
  Serious: Yes (Hospitalization)
  Sender: FDA-Public Use
  Company Number: KAD201405-000557

PATIENT
  Age: 25 Year
  Sex: Male
  Weight: 85.9 kg

DRUGS (2)
  1. RIBAVIRIN [Suspect]
     Route: 048
     Dates: start: 20140226
  2. SOFOSBUVIR [Suspect]
     Route: 048
     Dates: start: 20140226

REACTIONS (1)
  - Chest pain [None]
